FAERS Safety Report 6186011-7 (Version None)
Quarter: 2009Q2

REPORT INFORMATION
  Report Type: 
  Country: None (occurrence: None)
  Receive Date: 20090507
  Receipt Date: 20090427
  Transmission Date: 20091009
  Serious: Yes (Other)
  Sender: FDA-Public Use
  Company Number: 2009AP001703

PATIENT
  Age: 29 Year
  Sex: Male

DRUGS (1)
  1. SELEGILINE HCL [Suspect]
     Indication: PARKINSON'S DISEASE

REACTIONS (15)
  - ANXIETY [None]
  - BRADYKINESIA [None]
  - DEPRESSION [None]
  - GAMBLING [None]
  - HYPERSEXUALITY [None]
  - MARITAL PROBLEM [None]
  - MOOD SWINGS [None]
  - MUSCLE RIGIDITY [None]
  - NAUSEA [None]
  - OBSESSIVE-COMPULSIVE DISORDER [None]
  - PARAPHILIA [None]
  - PARKINSONIAN REST TREMOR [None]
  - PERSONALITY CHANGE [None]
  - TRANSVESTISM [None]
  - VOMITING [None]
